FAERS Safety Report 8234222-9 (Version None)
Quarter: 2012Q1

REPORT INFORMATION
  Report Type: 
  Country: None (occurrence: None)
  Receive Date: 20120326
  Receipt Date: 20120319
  Transmission Date: 20120608
  Serious: Yes (Other)
  Sender: FDA-Public Use
  Company Number: US-TEVA-329772USA

PATIENT
  Age: 64 Year
  Sex: Male

DRUGS (1)
  1. FLUOROURACIL [Suspect]
     Indication: COLORECTAL CANCER METASTATIC

REACTIONS (1)
  - HEPATIC STEATOSIS [None]
